FAERS Safety Report 10560346 (Version 2)
Quarter: 2014Q4

REPORT INFORMATION
  Report Type: Spontaneous
  Country: JP (occurrence: JP)
  Receive Date: 20141103
  Receipt Date: 20141208
  Transmission Date: 20150529
  Serious: Yes (Other)
  Sender: FDA-Public Use
  Company Number: JP-BAYER-2014-158235

PATIENT
  Age: 61 Year
  Sex: Male

DRUGS (14)
  1. GLIMEPIRIDE. [Concomitant]
     Active Substance: GLIMEPIRIDE
     Dosage: DAILY DOSE 1 MG
     Route: 048
  2. METFORMIN [Concomitant]
     Active Substance: METFORMIN HYDROCHLORIDE
     Dosage: DAILY DOSE 500 MG
     Route: 048
  3. BAYASPIRIN [Suspect]
     Active Substance: ASPIRIN
     Dosage: UNK
     Route: 048
  4. FENOFIBRATE. [Suspect]
     Active Substance: FENOFIBRATE
     Indication: HYPERTRIGLYCERIDAEMIA
     Dosage: UNK
     Route: 048
  5. LEVOTIROXINA [Concomitant]
     Active Substance: LEVOTHYROXINE SODIUM
     Dosage: UNK
  6. TICLOPIDINE HYDROCHLORIDE. [Concomitant]
     Active Substance: TICLOPIDINE HYDROCHLORIDE
     Dosage: UNK
     Route: 048
  7. PITAVASTATIN CALCIUM [Concomitant]
     Active Substance: PITAVASTATIN CALCIUM
     Dosage: UNK
     Route: 048
  8. BAYASPIRIN [Suspect]
     Active Substance: ASPIRIN
     Dosage: UNK
     Route: 048
  9. GLIMEPIRIDE. [Concomitant]
     Active Substance: GLIMEPIRIDE
     Dosage: DAILY DOSE 4 MG
     Route: 048
  10. PIOGLITAZONE [Suspect]
     Active Substance: PIOGLITAZONE
     Indication: HYPOGLYCAEMIA
     Dosage: DAILY DOSE 7.5 MG
     Route: 048
  11. OLMESARTAN MEDOXOMIL. [Concomitant]
     Active Substance: OLMESARTAN MEDOXOMIL
     Dosage: UNK
     Route: 048
  12. CIMETIDINE [Suspect]
     Active Substance: CIMETIDINE
  13. PIOGLITAZONE [Suspect]
     Active Substance: PIOGLITAZONE
     Indication: HYPOGLYCAEMIA
     Dosage: DAILY DOSE 15 MG
     Route: 048
  14. OMEPRAZOLE. [Concomitant]
     Active Substance: OMEPRAZOLE

REACTIONS (2)
  - Platelet count decreased [Recovered/Resolved]
  - White blood cell count decreased [None]
